FAERS Safety Report 12897953 (Version 1)
Quarter: 2016Q4

REPORT INFORMATION
  Report Type: Spontaneous
  Country: FR (occurrence: FR)
  Receive Date: 20161031
  Receipt Date: 20161031
  Transmission Date: 20170207
  Serious: Yes (Other)
  Sender: FDA-Public Use
  Company Number: FR-ALLERGAN-1674277US

PATIENT
  Age: 49 Year
  Sex: Female

DRUGS (2)
  1. MONUROL [Suspect]
     Active Substance: FOSFOMYCIN TROMETHAMINE
     Indication: URINARY TRACT INFECTION
     Dosage: 2 DF, Q WEEK
     Route: 048
     Dates: start: 201606, end: 201607
  2. MONUROL [Suspect]
     Active Substance: FOSFOMYCIN TROMETHAMINE
     Indication: ANTIBIOTIC PROPHYLAXIS
     Dosage: 1 DF, SINGLE
     Route: 048
     Dates: start: 20161017, end: 20161017

REACTIONS (3)
  - Off label use [Unknown]
  - Neutropenia [Unknown]
  - Product use issue [Unknown]
